FAERS Safety Report 4832162-6 (Version None)
Quarter: 2005Q4

REPORT INFORMATION
  Report Type: 
  Country: None (occurrence: None)
  Receive Date: 20051118
  Receipt Date: 20050930
  Transmission Date: 20060501
  Serious: Yes (Hospitalization)
  Sender: FDA-Public Use
  Company Number: US-MERCK-0510USA01866

PATIENT
  Age: 76 Year
  Sex: Female
  Weight: 58 kg

DRUGS (11)
  1. VIOXX [Suspect]
     Indication: MONARTHRITIS
     Route: 048
     Dates: start: 20020831, end: 20040901
  2. VIOXX [Suspect]
     Route: 048
     Dates: start: 20020831, end: 20040901
  3. ALLOPURINOL [Concomitant]
     Route: 065
  4. ASPIRIN [Concomitant]
     Route: 065
  5. GLYBURIDE [Concomitant]
     Route: 065
  6. HYDROCHLOROTHIAZIDE [Concomitant]
     Route: 065
  7. ACETAMINOPHEN AND HYDROCODONE BITARTRATE [Concomitant]
     Route: 065
  8. KLOR-CON [Concomitant]
     Route: 065
  9. LOTREL [Concomitant]
     Route: 065
  10. PREMARIN [Concomitant]
     Route: 065
  11. ZETIA [Concomitant]
     Route: 065

REACTIONS (1)
  - ISCHAEMIC STROKE [None]
